FAERS Safety Report 4848125-0 (Version None)
Quarter: 2005Q4

REPORT INFORMATION
  Report Type: 
  Country: None (occurrence: None)
  Receive Date: 20051208
  Receipt Date: 20051129
  Transmission Date: 20060501
  Serious: Yes (Hospitalization)
  Sender: FDA-Public Use
  Company Number: FR-AVENTIS-200513941FR

PATIENT

DRUGS (1)
  1. LOVENOX [Suspect]
     Indication: DRUG USE FOR UNKNOWN INDICATION
     Route: 063

REACTIONS (3)
  - DRUG EXPOSURE VIA BREAST MILK [None]
  - NEONATAL TACHYCARDIA [None]
  - TACHYCARDIA [None]
